FAERS Safety Report 5377858-5 (Version None)
Quarter: 2007Q3

REPORT INFORMATION
  Report Type: 
  Country: None (occurrence: None)
  Receive Date: 20070703
  Receipt Date: 20070621
  Transmission Date: 20080115
  Serious: Yes (Other)
  Sender: FDA-Public Use
  Company Number: US-PFIZER INC-2007053781

PATIENT
  Sex: Male
  Weight: 72.6 kg

DRUGS (2)
  1. ZYRTEC [Suspect]
     Indication: HYPERSENSITIVITY
  2. SUDAFED 24 HOUR TABLETS [Suspect]
     Indication: SINUS DISORDER
     Route: 048
     Dates: start: 20070621, end: 20070621

REACTIONS (2)
  - ACCIDENTAL OVERDOSE [None]
  - SINUS HEADACHE [None]
